FAERS Safety Report 6204125-X (Version None)
Quarter: 2009Q2

REPORT INFORMATION
  Report Type: 
  Country: None (occurrence: None)
  Receive Date: 20090526
  Receipt Date: 20090526
  Transmission Date: 20091009
  Serious: Yes (Other)
  Sender: FDA-Public Use
  Company Number: None

PATIENT
  Sex: Male
  Weight: 92.9874 kg

DRUGS (2)
  1. VENTOLIN HFA [Suspect]
     Indication: ASTHMA
     Dosage: 2 PUFFS EVERY 4 TO 6 HOURS AS NEEDED INHAL
     Route: 055
     Dates: start: 20090518, end: 20090521
  2. ANTIBIOTIC [Concomitant]

REACTIONS (3)
  - OROPHARYNGEAL PAIN [None]
  - PHARYNGITIS [None]
  - PRODUCT QUALITY ISSUE [None]
